FAERS Safety Report 8090755-X (Version None)
Quarter: 2012Q1

REPORT INFORMATION
  Report Type: 
  Country: None (occurrence: None)
  Receive Date: 20120125
  Receipt Date: 20120112
  Transmission Date: 20120608
  Serious: Yes (Death, Congenital Anomaly)
  Sender: FDA-Public Use
  Company Number: 1000025715

PATIENT

DRUGS (6)
  1. HAEMOGLOBIN IRON (IRON) [Concomitant]
  2. GRAVITAMIN (VITAMINS NOS) [Concomitant]
  3. ESCITALOPRAM OXALATE [Suspect]
     Dosage: 10 MG (10 MG, 1 IN 1 D), TRANSPLACENTAL
     Route: 064
     Dates: start: 20030217, end: 20030310
  4. KENACUTAN [Concomitant]
  5. ACETAMINOPHEN [Concomitant]
  6. VITAMIN (VITAMINS NOS) [Concomitant]

REACTIONS (3)
  - ABORTION INDUCED [None]
  - ANENCEPHALY [None]
  - MATERNAL DRUGS AFFECTING FOETUS [None]
